FAERS Safety Report 7375242-6 (Version None)
Quarter: 2011Q1

REPORT INFORMATION
  Report Type: 
  Country: None (occurrence: None)
  Receive Date: 20110325
  Receipt Date: 20110323
  Transmission Date: 20110831
  Serious: Yes (Hospitalization, Other)
  Sender: FDA-Public Use
  Company Number: US-ABBOTT-11P-163-0711569-00

PATIENT
  Sex: Female
  Weight: 109.87 kg

DRUGS (17)
  1. UNKNOWN INHALER [Suspect]
     Indication: CHRONIC OBSTRUCTIVE PULMONARY DISEASE
     Dosage: IN THE MORNING
  2. PLAQUENIL [Concomitant]
     Indication: RHEUMATOID ARTHRITIS
  3. METHOTREXATE [Concomitant]
     Indication: RHEUMATOID ARTHRITIS
  4. LISINOPRIL [Concomitant]
     Indication: HYPERTENSION
  5. NOVOLIN N [Concomitant]
     Indication: DIABETES MELLITUS
     Dosage: IN EVENING
     Route: 058
  6. HUMIRA [Suspect]
     Indication: RHEUMATOID ARTHRITIS
     Route: 058
     Dates: start: 20070101
  7. ASMANEX TWISTHALER [Concomitant]
     Indication: CHRONIC OBSTRUCTIVE PULMONARY DISEASE
  8. HUMIRA [Suspect]
     Route: 058
     Dates: start: 20110201
  9. CRESTOR [Concomitant]
     Indication: BLOOD CHOLESTEROL INCREASED
  10. WARFARIN [Concomitant]
     Indication: ANTICOAGULANT THERAPY
     Dosage: 5MG 6 DAYS/WK/ON 7 DAY- 2.5 MG
  11. DIGOXIN [Concomitant]
     Indication: ATRIAL FIBRILLATION
  12. GABAPENTIN [Concomitant]
     Indication: PRODUCT USED FOR UNKNOWN INDICATION
  13. METFORMIN [Concomitant]
     Indication: DIABETES MELLITUS
  14. SPIRONOLACTONE [Concomitant]
     Indication: PRODUCT USED FOR UNKNOWN INDICATION
  15. LASIX [Concomitant]
     Indication: CARDIAC FAILURE CONGESTIVE
  16. ASPIRIN [Concomitant]
     Indication: ANTICOAGULANT THERAPY
  17. METOPROLOL [Concomitant]
     Indication: HYPERTENSION

REACTIONS (6)
  - CARDIAC ABLATION [None]
  - PAIN IN EXTREMITY [None]
  - IMPLANTABLE DEFIBRILLATOR INSERTION [None]
  - OEDEMA PERIPHERAL [None]
  - CORONARY ARTERY BYPASS [None]
  - EJECTION FRACTION DECREASED [None]
